FAERS Safety Report 13349794 (Version 1)
Quarter: 2017Q1

REPORT INFORMATION
  Report Type: Spontaneous
  Country: US (occurrence: US)
  Receive Date: 20170318
  Receipt Date: 20170318
  Transmission Date: 20170429
  Serious: Yes (Hospitalization, Other)
  Sender: FDA-Public Use
  Company Number: None

PATIENT
  Age: 86 Year
  Sex: Female
  Weight: 54 kg

DRUGS (19)
  1. CARTIA XT [Suspect]
     Active Substance: DILTIAZEM HYDROCHLORIDE
     Indication: HYPERTENSION
     Dosage: ?          QUANTITY:1 CAPSULE(S);?
     Route: 048
     Dates: start: 20160901, end: 20170316
  2. SYMBICORT [Concomitant]
     Active Substance: BUDESONIDE\FORMOTEROL FUMARATE DIHYDRATE
  3. TRAMADOL. [Concomitant]
     Active Substance: TRAMADOL
  4. VITAMIN E [Concomitant]
     Active Substance: .ALPHA.-TOCOPHEROL
  5. CALCIUM/VITAMIN D [Concomitant]
     Active Substance: CALCIUM\VITAMIN D
  6. LISINOPRIL. [Concomitant]
     Active Substance: LISINOPRIL
  7. ALKA-SELTZER [Concomitant]
     Active Substance: ANHYDROUS CITRIC ACID\ASPIRIN\SODIUM BICARBONATE
  8. GLUCOSAMINE/CHONDROITIN /08437701/ [Concomitant]
     Active Substance: CHONDROITIN SULFATE (BOVINE)\GLUCOSAMINE SULFATE
  9. MIRALAX [Concomitant]
     Active Substance: POLYETHYLENE GLYCOL 3350
  10. MOM [Concomitant]
     Active Substance: MAGNESIUM HYDROXIDE
  11. SYNTHROID [Concomitant]
     Active Substance: LEVOTHYROXINE SODIUM
  12. ASA [Concomitant]
     Active Substance: ASPIRIN
  13. FLUTICASONE PROPIONATE. [Concomitant]
     Active Substance: FLUTICASONE PROPIONATE
  14. TURMERIC [Concomitant]
     Active Substance: TURMERIC
  15. LORATADINE. [Concomitant]
     Active Substance: LORATADINE
  16. DILTIAZEM. [Concomitant]
     Active Substance: DILTIAZEM
  17. TOPROL XL [Concomitant]
     Active Substance: METOPROLOL SUCCINATE
  18. HYDRALAZINE [Concomitant]
     Active Substance: HYDRALAZINE HYDROCHLORIDE
  19. IBUPROFEN. [Concomitant]
     Active Substance: IBUPROFEN

REACTIONS (11)
  - Hypertensive crisis [None]
  - Anxiety [None]
  - Hypertension [None]
  - Headache [None]
  - Myocardial ischaemia [None]
  - Dyspepsia [None]
  - Product odour abnormal [None]
  - Weight decreased [None]
  - Nausea [None]
  - Product substitution issue [None]
  - Gastrooesophageal reflux disease [None]

NARRATIVE: CASE EVENT DATE: 20160901
